FAERS Safety Report 14949293 (Version 1)
Quarter: 2018Q2

REPORT INFORMATION
  Report Type: Report from Study
  Country: US (occurrence: US)
  Receive Date: 20180529
  Receipt Date: 20180529
  Transmission Date: 20180711
  Serious: Yes (Hospitalization)
  Sender: FDA-Public Use
  Company Number: US-ACTELION-A-NJ2018-172515

PATIENT
  Age: 56 Year
  Sex: Male

DRUGS (14)
  1. OPSUMIT [Suspect]
     Active Substance: MACITENTAN
     Dosage: 10 MG, UNK
     Route: 048
     Dates: start: 20180508
  2. MICRO K [Concomitant]
  3. SILDENAFIL. [Concomitant]
     Active Substance: SILDENAFIL
  4. TRADJENTA [Concomitant]
     Active Substance: LINAGLIPTIN
  5. ASPIRIN. [Concomitant]
     Active Substance: ASPIRIN
  6. ATORVASTATIN [Concomitant]
     Active Substance: ATORVASTATIN
  7. GLYBURIDE. [Concomitant]
     Active Substance: GLYBURIDE
  8. CLOPIDOGREL [Concomitant]
     Active Substance: CLOPIDOGREL BISULFATE
  9. METFORMIN [Concomitant]
     Active Substance: METFORMIN HYDROCHLORIDE
  10. BUMETANIDE. [Concomitant]
     Active Substance: BUMETANIDE
  11. OPSUMIT [Suspect]
     Active Substance: MACITENTAN
     Indication: PULMONARY ARTERIAL HYPERTENSION
     Dosage: 10 MG, UNK
     Route: 048
     Dates: start: 201710, end: 20180507
  12. METOPROLOL. [Concomitant]
     Active Substance: METOPROLOL
  13. LEVOTHYROXINE. [Concomitant]
     Active Substance: LEVOTHYROXINE
  14. WARFARIN [Concomitant]
     Active Substance: WARFARIN

REACTIONS (2)
  - Stent placement [Recovered/Resolved]
  - Drug dose omission [Recovered/Resolved]

NARRATIVE: CASE EVENT DATE: 20180507
